FAERS Safety Report 7075448 (Version 6)
Quarter: 2012Q4

REPORT INFORMATION
  Report Type: 
  Country: CA (occurrence: CA)
  Receive Date: 20090807
  Receipt Date: 20121111
  Transmission Date: 20130627
  Serious: Yes (Other)
  Sender: FDA-Public Use
  Company Number: PHMT2006CA01128

PATIENT
  Sex: Male
  Weight: 115.19 kg

DRUGS (8)
  1. SANDOSTATIN LAR [Suspect]
     Indication: ACROMEGALY
     Dosage: 20 mg, UNK
     Route: 030
     Dates: start: 20031001
  2. SANDOSTATIN LAR [Suspect]
     Dosage: 30 mg, QMO
     Route: 030
  3. ALTACE [Concomitant]
  4. CRESTOR [Concomitant]
  5. MONOCOR [Concomitant]
  6. PLAVIX [Concomitant]
  7. CIALIS [Concomitant]
  8. VIAGRA [Concomitant]

REACTIONS (26)
  - Amaurosis fugax [Unknown]
  - Epilepsy [Unknown]
  - Amnesia [Unknown]
  - Petit mal epilepsy [Unknown]
  - Myoclonus [Unknown]
  - Foaming at mouth [Unknown]
  - Loss of consciousness [Unknown]
  - Dizziness [Unknown]
  - Blindness transient [Unknown]
  - Convulsion [Unknown]
  - Fall [Unknown]
  - Fatigue [Unknown]
  - Malaise [Unknown]
  - Pituitary tumour [Unknown]
  - Brain neoplasm [Unknown]
  - Hypoaesthesia [Recovered/Resolved]
  - Gastroenteritis [Unknown]
  - Myalgia [Unknown]
  - Vision blurred [Unknown]
  - Erectile dysfunction [Unknown]
  - Influenza [Unknown]
  - Heart rate increased [Unknown]
  - Blood glucose increased [Unknown]
  - Injection site pain [Unknown]
  - Asthenia [Unknown]
  - Diarrhoea [Unknown]
